FAERS Safety Report 24168840 (Version 1)
Quarter: 2024Q3

REPORT INFORMATION
  Report Type: Spontaneous
  Country: SA (occurrence: None)
  Receive Date: 20240802
  Receipt Date: 20240802
  Transmission Date: 20241017
  Serious: Yes (Life-Threatening, Other)
  Sender: ASTRAZENECA
  Company Number: 2024A170779

PATIENT
  Age: 19 Month
  Sex: Female

DRUGS (4)
  1. OMEPRAZOLE [Suspect]
     Active Substance: OMEPRAZOLE
     Route: 048
  2. CAPTOPRIL [Concomitant]
     Active Substance: CAPTOPRIL
     Indication: Heart disease congenital
  3. LASIX [Concomitant]
     Active Substance: FUROSEMIDE
     Indication: Heart disease congenital
  4. DIGOXIN [Concomitant]
     Active Substance: DIGOXIN
     Indication: Heart disease congenital

REACTIONS (2)
  - Dysphagia [Unknown]
  - Choking [Unknown]
